FAERS Safety Report 8290325-4 (Version None)
Quarter: 2012Q2

REPORT INFORMATION
  Report Type: 
  Country: None (occurrence: None)
  Receive Date: 20120413
  Receipt Date: 20120413
  Transmission Date: 20120825
  Serious: Yes (Other)
  Sender: FDA-Public Use
  Company Number: None

PATIENT
  Sex: Female

DRUGS (1)
  1. FORTEO [Suspect]
     Indication: SENILE OSTEOPOROSIS
     Dosage: 20MCG DAILY SUBQ
     Route: 058
     Dates: start: 20120320, end: 20120411

REACTIONS (3)
  - HOT FLUSH [None]
  - HAIR GROWTH ABNORMAL [None]
  - NAUSEA [None]
